FAERS Safety Report 6290702-7 (Version None)
Quarter: 2009Q3

REPORT INFORMATION
  Report Type: 
  Country: None (occurrence: None)
  Receive Date: 20090727
  Receipt Date: 20081223
  Transmission Date: 20100115
  Serious: Yes (Hospitalization)
  Sender: FDA-Public Use
  Company Number: OMPQ-PR-0812S-1152

PATIENT
  Age: 73 Year
  Sex: Male

DRUGS (8)
  1. OMNIPAQUE 300 [Suspect]
     Indication: ARTHRALGIA
     Dosage: SINGLE DOSE, I.T.
     Route: 038
     Dates: start: 20081216, end: 20081216
  2. PLAVIX [Concomitant]
  3. ASPIRIN [Concomitant]
  4. LOPID [Concomitant]
  5. METOPROLOL [Concomitant]
  6. ENALAPRIL MALEATE [Concomitant]
  7. ZOCOR [Concomitant]
  8. ADVIL LIQUI-GELS [Concomitant]

REACTIONS (4)
  - BACK PAIN [None]
  - CONFUSIONAL STATE [None]
  - HEADACHE [None]
  - PYREXIA [None]
